FAERS Safety Report 15858341 (Version 1)
Quarter: 2019Q1

REPORT INFORMATION
  Report Type: Spontaneous
  Country: US (occurrence: US)
  Receive Date: 20190123
  Receipt Date: 20190123
  Transmission Date: 20190417
  Serious: No
  Sender: FDA-Public Use
  Company Number: US-PFIZER INC-2019030564

PATIENT
  Age: 43 Year
  Sex: Female

DRUGS (1)
  1. IBRANCE [Suspect]
     Active Substance: PALBOCICLIB
     Indication: BREAST CANCER FEMALE
     Dosage: 125 MG, CYCLIC (WITH FOOD 21 DAYS ON 7 DAYS OFF)
     Route: 048
     Dates: start: 20181228

REACTIONS (4)
  - Pollakiuria [Unknown]
  - Dry mouth [Unknown]
  - Decreased appetite [Unknown]
  - Weight decreased [Unknown]
